FAERS Safety Report 9081755 (Version 1)
Quarter: 2013Q1

REPORT INFORMATION
  Report Type: Spontaneous
  Country: US (occurrence: US)
  Receive Date: 20130218
  Receipt Date: 20130218
  Transmission Date: 20140127
  Serious: No
  Sender: FDA-Public Use
  Company Number: US-PFIZER INC-2013058821

PATIENT
  Age: 53 Year
  Sex: Female

DRUGS (7)
  1. EFFEXOR [Suspect]
     Dosage: UNK
  2. CYMBALTA [Suspect]
     Dosage: 60 MG, A DAY
  3. TRAMADOL HCL [Concomitant]
     Dosage: 50 MG, 3X/DAY (AS NEEDED)
  4. FLEXERIL [Concomitant]
     Dosage: 10 MG, 2X/DAY (AS NEEDED)
  5. LYRICA [Concomitant]
     Dosage: 75 MG, 3X/DAY
     Route: 048
  6. AMITRIPTYLINE [Concomitant]
     Dosage: UNK
  7. VALIUM [Concomitant]
     Indication: SLEEP DISORDER
     Dosage: UNK, AT NIGHT

REACTIONS (1)
  - Abdominal discomfort [Unknown]
